FAERS Safety Report 19690067 (Version 1)
Quarter: 2021Q3

REPORT INFORMATION
  Report Type: Spontaneous
  Country: US (occurrence: US)
  Receive Date: 20210812
  Receipt Date: 20210812
  Transmission Date: 20211014
  Serious: No
  Sender: FDA-Public Use
  Company Number: None

PATIENT
  Age: 33 Year
  Sex: Male
  Weight: 108 kg

DRUGS (7)
  1. ESCITALOPRAM (GENERIC LEXAPRO) [Suspect]
     Active Substance: ESCITALOPRAM OXALATE
     Indication: DEPRESSION
     Dosage: ?          QUANTITY:1 TABLET(S);?
     Route: 048
  2. CAFFEINE DAILY [Concomitant]
  3. ESCITALOPRAM (GENERIC LEXAPRO) [Suspect]
     Active Substance: ESCITALOPRAM OXALATE
     Indication: ANXIETY
     Dosage: ?          QUANTITY:1 TABLET(S);?
     Route: 048
  4. BUPROPION XL [Concomitant]
     Active Substance: BUPROPION
  5. B?COMPLEX VITAMIN [Concomitant]
  6. MEN^S MULTI?VITAMIN [Concomitant]
  7. COFFEE [Concomitant]
     Active Substance: ARABICA COFFEE BEAN\COFFEE BEAN

REACTIONS (8)
  - Anxiety [None]
  - Depression [None]
  - Electric shock sensation [None]
  - Suicidal ideation [None]
  - Anger [None]
  - Impatience [None]
  - Restlessness [None]
  - Impulsive behaviour [None]
